FAERS Safety Report 4983547-9 (Version None)
Quarter: 2006Q2

REPORT INFORMATION
  Report Type: 
  Country: None (occurrence: None)
  Receive Date: 20060419
  Receipt Date: 20060407
  Transmission Date: 20061013
  Serious: Yes (Death, Life-Threatening, Hospitalization, Other)
  Sender: FDA-Public Use
  Company Number: 2004EU001739

PATIENT
  Age: 43 Year
  Sex: Female

DRUGS (6)
  1. FK506 (TACROLIMUS CAPSULES) [Suspect]
     Indication: RENAL AND PANCREAS TRANSPLANT
     Dosage: SEE IMAGE
     Dates: start: 20031021, end: 20040821
  2. FK506 (TACROLIMUS CAPSULES) [Suspect]
     Indication: RENAL AND PANCREAS TRANSPLANT
     Dosage: SEE IMAGE
     Dates: start: 20040901, end: 20051102
  3. FK506 (TACROLIMUS CAPSULES) [Suspect]
     Indication: RENAL AND PANCREAS TRANSPLANT
     Dosage: SEE IMAGE
     Dates: start: 20040822
  4. RAPAMYCIN(SIROLIMUS) [Suspect]
     Dosage: SEE IMAGE
     Dates: start: 20031021, end: 20040819
  5. RAPAMYCIN(SIROLIMUS) [Suspect]
     Dosage: SEE IMAGE
     Dates: start: 20040820
  6. PREDNISONE TAB [Concomitant]

REACTIONS (7)
  - COMPLICATIONS OF TRANSPLANTED PANCREAS [None]
  - DISEASE RECURRENCE [None]
  - LYMPHOPROLIFERATIVE DISORDER [None]
  - NEOPLASM [None]
  - NEOPLASM PROGRESSION [None]
  - RENAL FAILURE [None]
  - THERAPY NON-RESPONDER [None]
